FAERS Safety Report 5684159-4 (Version None)
Quarter: 2008Q1

REPORT INFORMATION
  Report Type: 
  Country: None (occurrence: None)
  Receive Date: 20080328
  Receipt Date: 20070416
  Transmission Date: 20080703
  Serious: No
  Sender: FDA-Public Use
  Company Number: US-AMGEN-KDL219675

PATIENT
  Sex: Female

DRUGS (4)
  1. NEULASTA [Suspect]
     Indication: CHEMOTHERAPY
     Dates: start: 20070330
  2. CISPLATIN [Concomitant]
  3. TAXOTERE [Concomitant]
  4. AVASTIN [Concomitant]

REACTIONS (3)
  - NIGHT SWEATS [None]
  - PAIN [None]
  - PYREXIA [None]
